FAERS Safety Report 7350284-5 (Version None)
Quarter: 2011Q1

REPORT INFORMATION
  Report Type: 
  Country: None (occurrence: None)
  Receive Date: 20110314
  Receipt Date: 20110309
  Transmission Date: 20110831
  Serious: Yes (Death)
  Sender: FDA-Public Use
  Company Number: GB-ELI_LILLY_AND_COMPANY-GB201103002867

PATIENT
  Age: 54 Year
  Sex: Male

DRUGS (3)
  1. FLUOXETINE [Suspect]
     Dosage: 50 D/F, UNK
  2. ALCOHOL [Concomitant]
  3. TEMAZEPAM [Concomitant]

REACTIONS (2)
  - RESPIRATORY DEPRESSION [None]
  - OVERDOSE [None]
